FAERS Safety Report 20539900 (Version 1)
Quarter: 2022Q1

REPORT INFORMATION
  Report Type: Spontaneous
  Country: ES (occurrence: ES)
  Receive Date: 20220302
  Receipt Date: 20220302
  Transmission Date: 20220423
  Serious: Yes (Life-Threatening, Other)
  Sender: FDA-Public Use
  Company Number: None

PATIENT
  Age: 45 Year
  Sex: Female
  Weight: 70 kg

DRUGS (3)
  1. ACETAMINOPHEN\TRAMADOL [Suspect]
     Active Substance: ACETAMINOPHEN\TRAMADOL
     Indication: Back pain
     Dosage: 1 DOSAGE FORM, EVERY 8 HRS
     Route: 065
     Dates: start: 20210501, end: 20210601
  2. DEXKETOPROFEN [Suspect]
     Active Substance: DEXKETOPROFEN
     Indication: Back pain
     Dosage: 1 DOSAGE FORM, EVERY 8 HRS
     Route: 065
     Dates: start: 20210501, end: 20210601
  3. DIAZEPAM [Suspect]
     Active Substance: DIAZEPAM
     Indication: Back pain
     Dosage: 1 DOSAGE FORM, 1/DAY
     Route: 065
     Dates: start: 20210501, end: 20210601

REACTIONS (2)
  - Abortion missed [Recovered/Resolved]
  - Maternal exposure during pregnancy [Recovered/Resolved]

NARRATIVE: CASE EVENT DATE: 20210501
